FAERS Safety Report 4348890-5 (Version None)
Quarter: 2004Q1

REPORT INFORMATION
  Report Type: 
  Country: None (occurrence: None)
  Receive Date: 20040325
  Receipt Date: 20040216
  Transmission Date: 20041129
  Serious: No
  Sender: FDA-Public Use
  Company Number: USA040259401

PATIENT
  Age: 65 Year
  Sex: Female
  Weight: 45 kg

DRUGS (8)
  1. FORTEO [Suspect]
     Indication: OSTEOPOROSIS
     Dosage: 20 UG/1 DAY
     Dates: start: 20040211
  2. AXID [Concomitant]
  3. CALCIUM PLUS D [Concomitant]
  4. BORAGE OIL [Concomitant]
  5. ASPIRIN [Concomitant]
  6. GLUCOSAMINE [Concomitant]
  7. TYLENOL [Concomitant]
  8. MULTI-VITAMIN [Concomitant]

REACTIONS (3)
  - INJECTION SITE ERYTHEMA [None]
  - INJECTION SITE HAEMORRHAGE [None]
  - INJECTION SITE REACTION [None]
